FAERS Safety Report 19951701 (Version 4)
Quarter: 2021Q4

REPORT INFORMATION
  Report Type: Report from Study
  Country: US (occurrence: US)
  Receive Date: 20211014
  Receipt Date: 20211109
  Transmission Date: 20220303
  Serious: Yes (Hospitalization, Other)
  Sender: FDA-Public Use
  Company Number: US-ABBVIE-21K-163-4117898-00

PATIENT
  Sex: Female
  Weight: 78.088 kg

DRUGS (22)
  1. HUMIRA [Suspect]
     Active Substance: ADALIMUMAB
     Indication: Psoriatic arthropathy
     Route: 058
     Dates: start: 20160623
  2. HUMIRA [Suspect]
     Active Substance: ADALIMUMAB
     Indication: Psoriasis
     Route: 058
  3. HUMIRA [Suspect]
     Active Substance: ADALIMUMAB
     Route: 058
  4. MODERNA COVID-19 VACCINE [Concomitant]
     Active Substance: CX-024414
     Indication: COVID-19 immunisation
     Dosage: MODERNA
     Route: 030
     Dates: start: 20210305, end: 20210305
  5. MODERNA COVID-19 VACCINE [Concomitant]
     Active Substance: CX-024414
     Dosage: MODERNA
     Route: 030
     Dates: start: 20210402, end: 20210402
  6. LEVOTHYROXINE [Concomitant]
     Active Substance: LEVOTHYROXINE
     Indication: Thyroid disorder
  7. MAGNESIUM OXIDE [Concomitant]
     Active Substance: MAGNESIUM OXIDE
     Indication: Hyperthyroidism
  8. OMEPRAZOLE [Concomitant]
     Active Substance: OMEPRAZOLE
     Indication: Oesophageal disorder
  9. AMMONIUM LACTATE [Concomitant]
     Active Substance: AMMONIUM LACTATE
     Indication: Product used for unknown indication
  10. DULOXETINE [Concomitant]
     Active Substance: DULOXETINE
     Indication: Depression
  11. GABAPENTIN [Concomitant]
     Active Substance: GABAPENTIN
     Indication: Pain
  12. ALBUTEROL [Concomitant]
     Active Substance: ALBUTEROL
     Indication: Asthma
     Dosage: INHALER
  13. ALBUTEROL [Concomitant]
     Active Substance: ALBUTEROL
     Dosage: NEBULIZER
  14. METOPROLOL [Concomitant]
     Active Substance: METOPROLOL
     Indication: Blood pressure measurement
  15. NYSTATIN [Concomitant]
     Active Substance: NYSTATIN
     Indication: Pain
  16. NYSTATIN [Concomitant]
     Active Substance: NYSTATIN
     Indication: Candida infection
  17. BENZONATATE [Concomitant]
     Active Substance: BENZONATATE
     Indication: Asthma
  18. CALCITRIOL [Concomitant]
     Active Substance: CALCITRIOL
     Indication: Hyperthyroidism
  19. CALCIUM CARBONATE [Concomitant]
     Active Substance: CALCIUM CARBONATE
     Indication: Hyperthyroidism
  20. ATORVASTATIN [Concomitant]
     Active Substance: ATORVASTATIN
     Indication: Hypertension
  21. BUSPIRONE [Concomitant]
     Active Substance: BUSPIRONE HYDROCHLORIDE
     Indication: Anxiety
  22. FLUOXETINE [Concomitant]
     Active Substance: FLUOXETINE HYDROCHLORIDE
     Indication: Depression

REACTIONS (25)
  - Loss of consciousness [Recovered/Resolved]
  - Loss of consciousness [Not Recovered/Not Resolved]
  - Disability [Unknown]
  - Primary familial brain calcification [Unknown]
  - Macular degeneration [Not Recovered/Not Resolved]
  - Pneumonia [Not Recovered/Not Resolved]
  - Gait inability [Not Recovered/Not Resolved]
  - Oesophageal injury [Recovering/Resolving]
  - Clumsiness [Unknown]
  - Bradykinesia [Unknown]
  - Fatigue [Unknown]
  - Memory impairment [Unknown]
  - Hallucination [Not Recovered/Not Resolved]
  - Wrong technique in product usage process [Unknown]
  - Device issue [Recovering/Resolving]
  - Weight decreased [Not Recovered/Not Resolved]
  - Visual impairment [Unknown]
  - Dyspepsia [Unknown]
  - Increased tendency to bruise [Unknown]
  - Migraine [Unknown]
  - Fall [Not Recovered/Not Resolved]
  - Oral candidiasis [Recovering/Resolving]
  - Tremor [Unknown]
  - Unevaluable event [Unknown]
  - Blood pressure increased [Unknown]

NARRATIVE: CASE EVENT DATE: 20190101
